FAERS Safety Report 13150944 (Version 1)
Quarter: 2017Q1

REPORT INFORMATION
  Report Type: Spontaneous
  Country: US (occurrence: US)
  Receive Date: 20170125
  Receipt Date: 20170125
  Transmission Date: 20170428
  Serious: No
  Sender: FDA-Public Use
  Company Number: US-GLAXOSMITHKLINE-US2017009552

PATIENT
  Age: 82 Year
  Sex: Female

DRUGS (8)
  1. METRAZOLE [Concomitant]
  2. BREO ELLIPTA [Suspect]
     Active Substance: FLUTICASONE FUROATE\VILANTEROL TRIFENATATE
     Indication: PRODUCT USED FOR UNKNOWN INDICATION
     Dosage: 100/25
     Route: 055
     Dates: start: 20170122
  3. AMLODIPINE BESILATE/BENAZEPRIL HYDROCHLORIDE [Concomitant]
  4. AUGMENTIN [Concomitant]
     Active Substance: AMOXICILLIN\CLAVULANATE POTASSIUM
  5. BYSTOLIC [Concomitant]
     Active Substance: NEBIVOLOL HYDROCHLORIDE
  6. LASIX [Concomitant]
     Active Substance: FUROSEMIDE
  7. MUCINEX [Concomitant]
     Active Substance: GUAIFENESIN
  8. PREDNISONE. [Concomitant]
     Active Substance: PREDNISONE

REACTIONS (1)
  - Device colour issue [Unknown]

NARRATIVE: CASE EVENT DATE: 20170122
